FAERS Safety Report 8478659-1 (Version None)
Quarter: 2012Q2

REPORT INFORMATION
  Report Type: 
  Country: None (occurrence: None)
  Receive Date: 20120621
  Receipt Date: 20120613
  Transmission Date: 20120825
  Serious: Yes (Other)
  Sender: FDA-Public Use
  Company Number: 2012SP014532

PATIENT
  Age: 73 Year
  Sex: Male
  Weight: 72.7 kg

DRUGS (10)
  1. ELOCON [Suspect]
     Indication: DRY SKIN
     Dosage: TOP
     Route: 061
     Dates: start: 20110310, end: 20120101
  2. INFLUENZA VIRUS (INFLUENZA VACCINE) [Suspect]
     Indication: PROPHYLAXIS
     Dosage: 1 DL QD
  3. ASPIRIN [Concomitant]
  4. HAVRIX [Suspect]
     Indication: PROPHYLAXIS
     Dosage: 1 DF; QD
  5. MENTHOL (MENTHOL /00482791/) [Suspect]
     Indication: DRY SKIN
  6. BETAMETHASONE VALERATE [Concomitant]
  7. ZEBETA [Concomitant]
  8. BETAMETHASONE [Suspect]
     Indication: DRY SKIN
     Dates: start: 20110101, end: 20120101
  9. EUCERIN UREA (UREA /00481901/) [Suspect]
     Indication: DRY SKIN
     Dates: start: 20110101, end: 20120101
  10. REVAXIS (REVAXIS /01525501/) [Suspect]
     Indication: PROPHYLAXIS
     Dosage: 1 DFL QD

REACTIONS (1)
  - LOSS OF CONSCIOUSNESS [None]
